FAERS Safety Report 8625014-7 (Version None)
Quarter: 2012Q3

REPORT INFORMATION
  Report Type: 
  Country: None (occurrence: None)
  Receive Date: 20120827
  Receipt Date: 20120821
  Transmission Date: 20120928
  Serious: Yes (Other)
  Sender: FDA-Public Use
  Company Number: US-PFIZER INC-2012206148

PATIENT
  Sex: Female
  Weight: 91.61 kg

DRUGS (8)
  1. ULTRAM [Concomitant]
     Indication: ARTHRALGIA
     Dosage: UNK
     Route: 048
  2. SPIRONOLACTONE [Concomitant]
     Dosage: 50 MG, 1X/DAY
  3. BYSTOLIC [Concomitant]
     Dosage: 5 MG, 1X/DAY
  4. PREMARIN [Suspect]
     Indication: MUSCLE SPASMS
     Dosage: 1.25 MG, 1X/DAY
     Route: 048
     Dates: end: 20120701
  5. AMLODIPINE [Concomitant]
     Dosage: 5 MG, 1X/DAY
  6. PROTONIX [Concomitant]
     Dosage: 40 MG, AS NEEDED
  7. PREMARIN [Suspect]
     Indication: PAIN
  8. PREMARIN [Suspect]
     Indication: HORMONE LEVEL ABNORMAL

REACTIONS (2)
  - MUSCLE SPASMS [None]
  - ENDOMETRIOSIS [None]
